FAERS Safety Report 4963799-1 (Version None)
Quarter: 2006Q1

REPORT INFORMATION
  Report Type: 
  Country: None (occurrence: None)
  Receive Date: 20060330
  Receipt Date: 20060320
  Transmission Date: 20060701
  Serious: Yes (Disabling, Other)
  Sender: FDA-Public Use
  Company Number: 2006039125

PATIENT
  Sex: Female
  Weight: 108.8633 kg

DRUGS (1)
  1. ZOLOFT [Suspect]
     Indication: DEPRESSION
     Dosage: 200 MG (1 IN 1 D), ORAL
     Route: 048

REACTIONS (5)
  - ABASIA [None]
  - ECONOMIC PROBLEM [None]
  - ROAD TRAFFIC ACCIDENT [None]
  - TREATMENT NONCOMPLIANCE [None]
  - UNEMPLOYMENT [None]
